FAERS Safety Report 18088911 (Version 1)
Quarter: 2020Q3

REPORT INFORMATION
  Report Type: Report from Study
  Country: BR (occurrence: BR)
  Receive Date: 20200730
  Receipt Date: 20200730
  Transmission Date: 20201103
  Serious: Yes (Other)
  Sender: FDA-Public Use
  Company Number: BR-JNJFOC-20200728715

PATIENT
  Age: 15 Year
  Sex: Male
  Weight: 34 kg

DRUGS (2)
  1. BIO?MANGUINHOS INFLIXIMABE [Suspect]
     Active Substance: INFLIXIMAB
     Indication: CROHN^S DISEASE
     Dosage: THERAPY START DATE ALSO REPORTED AS 2015 (PATIENT INFORMED DURING CONTACT)
     Route: 042
     Dates: start: 20141109
  2. BIO?MANGUINHOS INFLIXIMABE [Suspect]
     Active Substance: INFLIXIMAB
     Route: 042
     Dates: start: 201911, end: 202007

REACTIONS (3)
  - Crohn^s disease [Unknown]
  - Off label use [Unknown]
  - Product use issue [Unknown]

NARRATIVE: CASE EVENT DATE: 201911
